FAERS Safety Report 23506191 (Version 1)
Quarter: 2024Q1

REPORT INFORMATION
  Report Type: Spontaneous
  Country: CN (occurrence: CN)
  Receive Date: 20240209
  Receipt Date: 20240209
  Transmission Date: 20240410
  Serious: Yes (Hospitalization)
  Sender: FDA-Public Use
  Company Number: CN-GLAXOSMITHKLINE-CN2024APC015583

PATIENT

DRUGS (2)
  1. SERETIDE [Suspect]
     Active Substance: FLUTICASONE PROPIONATE\SALMETEROL XINAFOATE
     Indication: Chronic obstructive pulmonary disease
     Dosage: 1 PUFF(S), QD
     Dates: start: 20230922
  2. OXYGEN [Concomitant]
     Active Substance: OXYGEN
     Indication: Chronic obstructive pulmonary disease
     Dosage: UNK

REACTIONS (4)
  - Chronic obstructive pulmonary disease [Unknown]
  - Hypertension [Unknown]
  - Product use issue [Unknown]
  - Incorrect dose administered [Unknown]

NARRATIVE: CASE EVENT DATE: 20240201
